FAERS Safety Report 10348880 (Version 1)
Quarter: 2014Q3

REPORT INFORMATION
  Report Type: Spontaneous
  Country: JP (occurrence: None)
  Receive Date: 20140725
  Receipt Date: 20140725
  Transmission Date: 20150326
  Serious: Yes (Other)
  Sender: FDA-Public Use
  Company Number: JP-AIKEM-000661

PATIENT
  Age: 20 Year
  Sex: Male

DRUGS (4)
  1. RITUXIMAB (RITUXIMAB) [Suspect]
     Active Substance: RITUXIMAB
     Indication: PRODUCT USED FOR UNKNOWN INDICATION
  2. MYCOPHENOLATE MOFETIL (MYCOPHENOLATE MOFETIL) [Suspect]
     Active Substance: MYCOPHENOLATE MOFETIL
     Indication: RENAL TRANSPLANT
  3. PREDNISOLONE (PREDNISOLONE) [Suspect]
     Active Substance: PREDNISOLONE
     Indication: RENAL TRANSPLANT
  4. TACROLIMUS (TACROLIMUS) [Suspect]
     Active Substance: TACROLIMUS
     Indication: RENAL TRANSPLANT

REACTIONS (2)
  - Agranulocytosis [None]
  - Diarrhoea [None]
